FAERS Safety Report 5485522-7 (Version None)
Quarter: 2007Q4

REPORT INFORMATION
  Report Type: 
  Country: None (occurrence: None)
  Receive Date: 20071011
  Receipt Date: 20070926
  Transmission Date: 20080405
  Serious: Yes (Death)
  Sender: FDA-Public Use
  Company Number: 162052ISR

PATIENT

DRUGS (4)
  1. CISPLATIN [Suspect]
     Indication: GERM CELL CANCER
     Dosage: (50 MG/M2)
  2. ETOPOSIDE [Suspect]
     Indication: GERM CELL CANCER
     Dosage: (90 MG/M2)
  3. DACTINOMYCIN [Suspect]
     Indication: GERM CELL CANCER
     Dosage: (1 MG/M2)
  4. METHOTREXATE [Suspect]
     Indication: GERM CELL CANCER

REACTIONS (1)
  - SEPSIS [None]
